FAERS Safety Report 4744659-8 (Version None)
Quarter: 2005Q3

REPORT INFORMATION
  Report Type: 
  Country: None (occurrence: None)
  Receive Date: 20050815
  Receipt Date: 20050804
  Transmission Date: 20060218
  Serious: Yes (Death)
  Sender: FDA-Public Use
  Company Number: US-JNJFOC-20050801591

PATIENT
  Sex: Male
  Weight: 55.79 kg

DRUGS (5)
  1. INFLIXIMAB [Suspect]
     Indication: RHEUMATOID ARTHRITIS
  2. METHOTREXATE [Concomitant]
  3. CALCIUM GLUCONATE [Concomitant]
  4. NAPROXEN [Concomitant]
  5. PREDNISONE [Concomitant]

REACTIONS (1)
  - PANCREATIC CARCINOMA [None]
